FAERS Safety Report 7513169-7 (Version None)
Quarter: 2011Q2

REPORT INFORMATION
  Report Type: 
  Country: None (occurrence: None)
  Receive Date: 20110531
  Receipt Date: 20110524
  Transmission Date: 20111010
  Serious: Yes (Other)
  Sender: FDA-Public Use
  Company Number: CH-MERCK-1103USA03529

PATIENT
  Age: 72 Year
  Sex: Female
  Weight: 70 kg

DRUGS (1)
  1. VYTORIN [Suspect]
     Indication: HYPERLIPIDAEMIA
     Route: 048
     Dates: start: 20100101

REACTIONS (4)
  - FEELING ABNORMAL [None]
  - HOT FLUSH [None]
  - HYPERHIDROSIS [None]
  - OVARIAN NEOPLASM [None]
